FAERS Safety Report 9920820 (Version 1)
Quarter: 2014Q1

REPORT INFORMATION
  Report Type: Spontaneous
  Country: JP (occurrence: JP)
  Receive Date: 20140224
  Receipt Date: 20140224
  Transmission Date: 20141002
  Serious: Yes (Other)
  Sender: FDA-Public Use
  Company Number: JP-ROCHE-1354582

PATIENT
  Age: 76 Year
  Sex: Male

DRUGS (5)
  1. AVASTIN [Suspect]
     Indication: COLON CANCER
     Route: 041
  2. 5-FLUOROURACIL [Concomitant]
     Indication: COLON CANCER
     Route: 040
  3. 5-FLUOROURACIL [Concomitant]
     Route: 041
  4. CALCIUM LEVOFOLINATE [Concomitant]
     Indication: COLON CANCER
     Route: 041
  5. ELPLAT [Concomitant]
     Indication: COLON CANCER
     Route: 041

REACTIONS (1)
  - Interstitial lung disease [Recovered/Resolved]
